FAERS Safety Report 17523625 (Version 1)
Quarter: 2020Q1

REPORT INFORMATION
  Report Type: Spontaneous
  Country: US (occurrence: US)
  Receive Date: 20200310
  Receipt Date: 20200310
  Transmission Date: 20200409
  Serious: No
  Sender: FDA-Public Use
  Company Number: US-PFIZER INC-2020103923

PATIENT
  Age: 78 Year
  Sex: Male
  Weight: 80.74 kg

DRUGS (3)
  1. DAPTOMYCIN. [Suspect]
     Active Substance: DAPTOMYCIN
     Indication: INFECTION
     Dosage: UNK, 1X/DAY
     Route: 042
     Dates: start: 201904
  2. TIKOSYN [Suspect]
     Active Substance: DOFETILIDE
     Indication: ATRIAL FIBRILLATION
     Dosage: UNK
     Dates: start: 201903
  3. SOTALOL. [Concomitant]
     Active Substance: SOTALOL
     Dosage: UNK

REACTIONS (2)
  - Paraesthesia [Not Recovered/Not Resolved]
  - Balance disorder [Unknown]

NARRATIVE: CASE EVENT DATE: 201906
